FAERS Safety Report 18290110 (Version 1)
Quarter: 2020Q3

REPORT INFORMATION
  Report Type: Spontaneous
  Country: US (occurrence: US)
  Receive Date: 20200921
  Receipt Date: 20200921
  Transmission Date: 20201103
  Serious: Yes (Hospitalization, Other)
  Sender: FDA-Public Use
  Company Number: US-NOVOPROD-753473

PATIENT
  Age: 68 Year
  Sex: Male

DRUGS (2)
  1. NOVOLOG [Concomitant]
     Active Substance: INSULIN ASPART
     Indication: TYPE 2 DIABETES MELLITUS
     Dosage: 20 ? 30 UNITS PER DAY
     Route: 058
     Dates: start: 2016
  2. LEVEMIR [Suspect]
     Active Substance: INSULIN DETEMIR
     Indication: TYPE 2 DIABETES MELLITUS
     Dosage: 60 IU, QD
     Route: 058
     Dates: start: 2018

REACTIONS (4)
  - Animal bite [Unknown]
  - Retinal detachment [Unknown]
  - Visual impairment [Unknown]
  - Vitreous floaters [Recovered/Resolved]

NARRATIVE: CASE EVENT DATE: 2018
